FAERS Safety Report 5913377-2 (Version None)
Quarter: 2008Q4

REPORT INFORMATION
  Report Type: 
  Country: None (occurrence: None)
  Receive Date: 20081009
  Receipt Date: 20081001
  Transmission Date: 20090506
  Serious: Yes (Other)
  Sender: FDA-Public Use
  Company Number: PHHY2008JP23515

PATIENT
  Age: 73 Year
  Sex: Female

DRUGS (2)
  1. GLEEVEC [Suspect]
     Indication: CHRONIC MYELOID LEUKAEMIA
     Dosage: 600 MG
     Route: 048
  2. GLEEVEC [Suspect]
     Dosage: 300 MG
     Route: 048

REACTIONS (2)
  - FASCIITIS [None]
  - PANCYTOPENIA [None]
